FAERS Safety Report 6444232-X (Version None)
Quarter: 2009Q4

REPORT INFORMATION
  Report Type: 
  Country: None (occurrence: None)
  Receive Date: 20091118
  Receipt Date: 20091104
  Transmission Date: 20100525
  Serious: Yes (Hospitalization)
  Sender: FDA-Public Use
  Company Number: FR-ROCHE-667508

PATIENT
  Sex: Male
  Weight: 54 kg

DRUGS (22)
  1. CAPECITABINE [Suspect]
     Indication: GASTRIC CANCER
     Route: 048
     Dates: start: 20080526
  2. CAPECITABINE [Suspect]
     Route: 048
     Dates: start: 20080616
  3. CAPECITABINE [Suspect]
     Route: 048
     Dates: start: 20080708
  4. CAPECITABINE [Suspect]
     Route: 048
     Dates: start: 20080729
  5. CAPECITABINE [Suspect]
     Route: 048
     Dates: start: 20080827, end: 20080827
  6. EPIRUBICIN [Suspect]
     Indication: GASTRIC CANCER
     Route: 042
     Dates: start: 20080526
  7. EPIRUBICIN [Suspect]
     Route: 042
     Dates: start: 20080616
  8. EPIRUBICIN [Suspect]
     Route: 042
     Dates: start: 20080708
  9. EPIRUBICIN [Suspect]
     Route: 042
     Dates: start: 20080729
  10. EPIRUBICIN [Suspect]
     Route: 042
     Dates: start: 20080827, end: 20080827
  11. CISPLATIN [Suspect]
     Indication: GASTRIC CANCER
     Route: 042
     Dates: start: 20080526
  12. CISPLATIN [Suspect]
     Route: 042
     Dates: start: 20080616
  13. CISPLATIN [Suspect]
     Route: 042
     Dates: start: 20080708
  14. CISPLATIN [Suspect]
     Route: 042
     Dates: start: 20080729
  15. CISPLATIN [Suspect]
     Route: 042
     Dates: start: 20080827, end: 20080827
  16. PRIMPERAN TAB [Concomitant]
     Indication: NAUSEA
     Route: 042
     Dates: start: 20080827, end: 20080827
  17. ZOPHREN [Concomitant]
     Indication: NAUSEA
     Route: 048
     Dates: start: 20080827, end: 20080917
  18. MORPHINE SULFATE [Concomitant]
     Indication: PAIN
     Route: 048
     Dates: start: 20080826, end: 20080917
  19. ACTISKENAN [Concomitant]
     Indication: PAIN
     Route: 048
     Dates: start: 20080826, end: 20080917
  20. FORLAX [Concomitant]
     Indication: LAXATIVE SUPPORTIVE CARE
     Dosage: DRUG: MACROGOL 4000, TDD: 1 POUCH
     Route: 048
     Dates: start: 20080826, end: 20080917
  21. SOLU-MEDROL [Concomitant]
     Indication: ANTIINFLAMMATORY THERAPY
     Route: 042
     Dates: start: 20080827, end: 20080827
  22. NEXIUM [Concomitant]
     Indication: GASTRIC ULCER
     Route: 048
     Dates: start: 20080826, end: 20080917

REACTIONS (28)
  - ABDOMINAL MASS [None]
  - ABDOMINAL PAIN [None]
  - ABDOMINAL PAIN UPPER [None]
  - ASTHENIA [None]
  - CELL DEATH [None]
  - CHOLESTASIS [None]
  - CREPITATIONS [None]
  - DECREASED APPETITE [None]
  - DISEASE PROGRESSION [None]
  - DRY MOUTH [None]
  - ECCHYMOSIS [None]
  - HAEMORRHOIDS [None]
  - HEPATOMEGALY [None]
  - HICCUPS [None]
  - HYPERKALAEMIA [None]
  - HYPOCAPNIA [None]
  - HYPOXIA [None]
  - INFLAMMATION [None]
  - NORMOCHROMIC NORMOCYTIC ANAEMIA [None]
  - PERICARDIAL EFFUSION [None]
  - PLATELET COUNT DECREASED [None]
  - PLEURAL EFFUSION [None]
  - PROSTATITIS ESCHERICHIA COLI [None]
  - PULMONARY EMBOLISM [None]
  - TACHYCARDIA [None]
  - URINARY TRACT INFECTION [None]
  - VOMITING [None]
  - WEIGHT DECREASED [None]
